FAERS Safety Report 6732505-2 (Version None)
Quarter: 2010Q2

REPORT INFORMATION
  Report Type: 
  Country: None (occurrence: None)
  Receive Date: 20100519
  Receipt Date: 20100512
  Transmission Date: 20101027
  Serious: Yes (Other)
  Sender: FDA-Public Use
  Company Number: US-ELI_LILLY_AND_COMPANY-US201005003620

PATIENT
  Sex: Female

DRUGS (2)
  1. CIALIS [Suspect]
     Indication: PERIPHERAL VASCULAR DISORDER
     Dosage: 10 MG, DAILY (1/D)
     Dates: start: 20081101
  2. CIALIS [Suspect]
     Dosage: 20 MG, 1/2 TABLET DAILY

REACTIONS (5)
  - GANGRENE [None]
  - INFECTION [None]
  - INTENTIONAL DRUG MISUSE [None]
  - OFF LABEL USE [None]
  - SKIN ULCER [None]
